FAERS Safety Report 16044308 (Version 1)
Quarter: 2019Q1

REPORT INFORMATION
  Report Type: Spontaneous
  Country: US (occurrence: US)
  Receive Date: 20190306
  Receipt Date: 20190306
  Transmission Date: 20190418
  Serious: No
  Sender: FDA-Public Use
  Company Number: US-JUBILANT CADISTA PHARMACEUTICALS-2018JUB00333

PATIENT
  Age: 17 Year
  Sex: Female
  Weight: 63.49 kg

DRUGS (2)
  1. LAMOTRIGINE. [Suspect]
     Active Substance: LAMOTRIGINE
     Indication: AFFECTIVE DISORDER
     Dosage: 50 MG, 2X/DAY
     Route: 048
     Dates: start: 20180803, end: 201808
  2. ^ROMIPROZOLE^ (MACO) [Concomitant]
     Dosage: 2 MG, 1X/DAY AT NIGHT

REACTIONS (1)
  - Drug effect incomplete [Recovered/Resolved]

NARRATIVE: CASE EVENT DATE: 20180804
